FAERS Safety Report 23616391 (Version 7)
Quarter: 2025Q3

REPORT INFORMATION
  Report Type: Spontaneous
  Country: US (occurrence: US)
  Receive Date: 20240311
  Receipt Date: 20250917
  Transmission Date: 20251020
  Serious: No
  Sender: SANOFI AVENTIS
  Company Number: US-SA-SAC20240307000301

PATIENT
  Age: 54 Year
  Sex: Female

DRUGS (2)
  1. DUPIXENT [Suspect]
     Active Substance: DUPILUMAB
     Indication: Dermatitis atopic
     Route: 058
     Dates: start: 202402, end: 202402
  2. DUPIXENT [Suspect]
     Active Substance: DUPILUMAB
     Dosage: 300 MG, QOW
     Route: 058
     Dates: start: 20240301

REACTIONS (14)
  - Skin swelling [Unknown]
  - Dermatitis [Unknown]
  - Condition aggravated [Unknown]
  - Rebound atopic dermatitis [Unknown]
  - Pruritus [Unknown]
  - Hypertension [Unknown]
  - Erythema [Unknown]
  - Urticaria [Unknown]
  - Injection site erythema [Recovering/Resolving]
  - Dermatitis atopic [Recovering/Resolving]
  - Pruritus [Recovering/Resolving]
  - Dry eye [Unknown]
  - Product dose omission in error [Unknown]
  - Incorrect dose administered [Unknown]

NARRATIVE: CASE EVENT DATE: 20240201
